FAERS Safety Report 17537882 (Version 1)
Quarter: 2020Q1

REPORT INFORMATION
  Report Type: Spontaneous
  Country: US (occurrence: US)
  Receive Date: 20200312
  Receipt Date: 20200312
  Transmission Date: 20200409
  Serious: No
  Sender: FDA-Public Use
  Company Number: None

PATIENT
  Age: 41 Year
  Sex: Female
  Weight: 78.3 kg

DRUGS (6)
  1. SIMPONI [Suspect]
     Active Substance: GOLIMUMAB
     Indication: RHEUMATOID ARTHRITIS
  2. MULTIVITAMIN [Concomitant]
     Active Substance: VITAMINS
  3. METHOTREXATE. [Concomitant]
     Active Substance: METHOTREXATE
  4. BIOTIN [Concomitant]
     Active Substance: BIOTIN
  5. CALCIUM [Concomitant]
     Active Substance: CALCIUM
  6. VITAMIN D [Concomitant]
     Active Substance: VITAMIN D NOS

REACTIONS (2)
  - Weight increased [None]
  - Fluid retention [None]

NARRATIVE: CASE EVENT DATE: 20200301
